FAERS Safety Report 9417774 (Version 1)
Quarter: 2013Q3

REPORT INFORMATION
  Report Type: Spontaneous
  Country: US (occurrence: US)
  Receive Date: 20130724
  Receipt Date: 20130724
  Transmission Date: 20140515
  Serious: No
  Sender: FDA-Public Use
  Company Number: US-COVIDIEN/TYCO HEALTHCARE/MALLINCKRODT-T201302785

PATIENT
  Sex: Male
  Weight: 99.77 kg

DRUGS (4)
  1. MORPHINE EXTENDED-RELEASE [Suspect]
     Indication: PAIN
     Dosage: 30 MG, TID
     Route: 048
  2. HYDROMORPHONE [Concomitant]
     Indication: PAIN
     Dosage: 2 MG, TID, Q 4-6 HOURS
     Route: 048
  3. SOMA [Concomitant]
     Indication: MUSCLE RELAXANT THERAPY
     Dosage: 250 MG, TID
     Route: 048
  4. CELEBREX [Concomitant]
     Indication: PAIN
     Dosage: 200 MG, QD
     Route: 048

REACTIONS (2)
  - Drug effect decreased [Not Recovered/Not Resolved]
  - Medication residue present [Unknown]
